FAERS Safety Report 4283586-X (Version None)
Quarter: 2004Q1

REPORT INFORMATION
  Report Type: 
  Country: None (occurrence: None)
  Receive Date: 20040202
  Receipt Date: 20040121
  Transmission Date: 20041129
  Serious: Yes (Other)
  Sender: FDA-Public Use
  Company Number: GB-GLAXOSMITHKLINE-B0320504A

PATIENT
  Sex: Female

DRUGS (1)
  1. ZYBAN [Suspect]
     Dosage: 2TABS PER DAY
     Route: 048
     Dates: start: 20031008, end: 20031001

REACTIONS (11)
  - BLISTER [None]
  - BURNING SENSATION [None]
  - EYE SWELLING [None]
  - LOCAL SWELLING [None]
  - OEDEMA PERIPHERAL [None]
  - PSORIASIS [None]
  - RASH [None]
  - RASH MACULAR [None]
  - SWELLING FACE [None]
  - THROMBOSIS [None]
  - TREMOR [None]
